FAERS Safety Report 9135657 (Version 1)
Quarter: 2013Q1

REPORT INFORMATION
  Report Type: Spontaneous
  Country: US (occurrence: US)
  Receive Date: 20130304
  Receipt Date: 20130304
  Transmission Date: 20140127
  Serious: No
  Sender: FDA-Public Use
  Company Number: US-ENDO PHARMACEUTICALS INC.-ENDC20110232

PATIENT
  Sex: Female
  Weight: 79.9 kg

DRUGS (1)
  1. ENDOCET [Suspect]
     Indication: ABDOMINAL PAIN
     Dosage: 60MG/1950MG
     Route: 048
     Dates: start: 20110825, end: 20110925

REACTIONS (3)
  - Chest pain [Recovering/Resolving]
  - Thrombosis [Recovering/Resolving]
  - Insomnia [Recovering/Resolving]
